FAERS Safety Report 16233383 (Version 1)
Quarter: 2019Q2

REPORT INFORMATION
  Report Type: Spontaneous
  Country: US (occurrence: US)
  Receive Date: 20190319
  Receipt Date: 20190319
  Transmission Date: 20190711
  Serious: Yes (Hospitalization)
  Sender: FDA-Public Use
  Company Number: None

PATIENT
  Age: 78 Year
  Sex: Male
  Weight: 106.8 kg

DRUGS (2)
  1. LEUPROLIDE ACETATE. [Suspect]
     Active Substance: LEUPROLIDE ACETATE
     Dates: end: 20190212
  2. CASODEX [Suspect]
     Active Substance: BICALUTAMIDE
     Dates: end: 20190228

REACTIONS (11)
  - Dyspnoea exertional [None]
  - Dyspnoea [None]
  - Hypertension [None]
  - Asthenia [None]
  - Electrocardiogram abnormal [None]
  - Hot flush [None]
  - Fatigue [None]
  - Balance disorder [None]
  - Anaemia [None]
  - Dizziness [None]
  - Echocardiogram abnormal [None]

NARRATIVE: CASE EVENT DATE: 20190228
